FAERS Safety Report 4557189-3 (Version None)
Quarter: 2005Q1

REPORT INFORMATION
  Report Type: 
  Country: None (occurrence: None)
  Receive Date: 20050118
  Receipt Date: 20050110
  Transmission Date: 20050727
  Serious: Yes (Hospitalization)
  Sender: FDA-Public Use
  Company Number: MK200501-0093-1

PATIENT
  Age: 60 Year
  Sex: Male

DRUGS (3)
  1. OPTIRAY 320 [Suspect]
     Dosage: 50 ML, SINGLE USE
     Dates: start: 20040410, end: 20040410
  2. ATENOLOL [Concomitant]
  3. ACENOCOUMAROL [Concomitant]

REACTIONS (1)
  - ENCEPHALOPATHY [None]
